FAERS Safety Report 5625173-4 (Version None)
Quarter: 2008Q1

REPORT INFORMATION
  Report Type: 
  Country: None (occurrence: None)
  Receive Date: 20080213
  Receipt Date: 20080204
  Transmission Date: 20080703
  Serious: Yes (Disabling, Other)
  Sender: FDA-Public Use
  Company Number: BE-ABBOTT-08P-013-0437137-00

PATIENT
  Sex: Male
  Weight: 65 kg

DRUGS (5)
  1. HUMIRA [Suspect]
     Indication: RHEUMATOID ARTHRITIS
     Dates: start: 20020101, end: 20060201
  2. HUMIRA [Suspect]
     Dates: start: 20070101, end: 20070830
  3. PREVALON [Concomitant]
     Indication: DRUG USE FOR UNKNOWN INDICATION
  4. PULMOCORTISON INY [Concomitant]
     Indication: DRUG USE FOR UNKNOWN INDICATION
  5. MOMETASONE FUROATE [Concomitant]
     Indication: DRUG USE FOR UNKNOWN INDICATION

REACTIONS (6)
  - AMYOTROPHIC LATERAL SCLEROSIS [None]
  - ARTHROPATHY [None]
  - DYSARTHRIA [None]
  - DYSPHAGIA [None]
  - HYPERSENSITIVITY [None]
  - WEIGHT DECREASED [None]
